FAERS Safety Report 16181751 (Version 2)
Quarter: 2019Q2

REPORT INFORMATION
  Report Type: Spontaneous
  Country: US (occurrence: US)
  Receive Date: 20190410
  Receipt Date: 20190411
  Transmission Date: 20190711
  Serious: Yes (Hospitalization)
  Sender: FDA-Public Use
  Company Number: US-JNJFOC-20190338236

PATIENT

DRUGS (1)
  1. LISTERINE ZERO [Suspect]
     Active Substance: MINT\PROPYLENE GLYCOL\SORBITOL
     Indication: PRODUCT USED FOR UNKNOWN INDICATION
     Dosage: ENTIRE BOTTLE
     Route: 048

REACTIONS (2)
  - Incorrect route of product administration [Unknown]
  - Intentional product misuse [Unknown]
